FAERS Safety Report 6271681-5 (Version None)
Quarter: 2009Q3

REPORT INFORMATION
  Report Type: 
  Country: None (occurrence: None)
  Receive Date: 20090713
  Receipt Date: 20081103
  Transmission Date: 20100115
  Serious: Yes (Other)
  Sender: FDA-Public Use
  Company Number: 53968

PATIENT
  Sex: Female

DRUGS (8)
  1. MIDAZOLAM HCL [Suspect]
     Indication: AMNESIA
     Dates: start: 20081103
  2. NEXIUM [Concomitant]
  3. CRESTOR [Concomitant]
  4. MULTI-VITAMIN [Concomitant]
  5. CALCIUM OTC [Concomitant]
  6. VICODIN [Concomitant]
  7. ACTIFED OTC [Concomitant]
  8. ASPIRIN [Concomitant]

REACTIONS (1)
  - DRUG INEFFECTIVE [None]
